FAERS Safety Report 8448851-0 (Version None)
Quarter: 2012Q2

REPORT INFORMATION
  Report Type: 
  Country: None (occurrence: None)
  Receive Date: 20120611
  Receipt Date: 20120516
  Transmission Date: 20120825
  Serious: Yes (Death)
  Sender: FDA-Public Use
  Company Number: EU-2012-10163

PATIENT
  Age: 47 Year

DRUGS (3)
  1. SAMSCA [Suspect]
     Dosage: 15;30;45 MG, DAILY DOSE
     Dates: start: 20120101, end: 20120201
  2. SAMSCA [Suspect]
     Dosage: 15;30;45 MG, DAILY DOSE
     Dates: end: 20120401
  3. SAMSCA [Suspect]
     Dosage: 15;30;45 MG, DAILY DOSE
     Dates: start: 20120201

REACTIONS (2)
  - BRONCHIAL CARCINOMA [None]
  - NEOPLASM PROGRESSION [None]
